FAERS Safety Report 16213680 (Version 3)
Quarter: 2019Q3

REPORT INFORMATION
  Report Type: Spontaneous
  Country: FR (occurrence: FR)
  Receive Date: 20190418
  Receipt Date: 20190917
  Transmission Date: 20191004
  Serious: Yes (Death)
  Sender: FDA-Public Use
  Company Number: FR-MYLANLABS-2019M1038284

PATIENT
  Age: 63 Year
  Sex: Female
  Weight: 55 kg

DRUGS (9)
  1. QUETIAPINE. [Suspect]
     Active Substance: QUETIAPINE
     Indication: MENTAL DISORDER
     Dosage: 800 MILLIGRAM, QD
     Route: 048
     Dates: start: 20180625
  2. DIAZEPAM. [Suspect]
     Active Substance: DIAZEPAM
     Indication: MENTAL DISORDER
     Dosage: 30 MILLIGRAM, QD
     Route: 048
     Dates: start: 20190227
  3. TERALITHE [Suspect]
     Active Substance: LITHIUM CARBONATE
     Indication: MENTAL DISORDER
     Dosage: 1000 MILLIGRAM, QD
     Route: 048
     Dates: start: 20171122
  4. CLOZAPINE. [Suspect]
     Active Substance: CLOZAPINE
     Indication: MENTAL DISORDER
     Dosage: 270 MILLIGRAM, QD
     Route: 048
     Dates: start: 20190104
  5. LARGACTIL                          /00011901/ [Suspect]
     Active Substance: CHLORPROMAZINE
     Indication: MENTAL DISORDER
     Dosage: 200 MILLIGRAM, QD
     Route: 048
     Dates: start: 20190126
  6. GABAPENTINE ARROW [Suspect]
     Active Substance: GABAPENTIN
     Indication: PRODUCT USED FOR UNKNOWN INDICATION
     Dosage: 600 MILLIGRAM, QD
     Route: 048
     Dates: start: 20180201
  7. IMOVANE [Suspect]
     Active Substance: ZOPICLONE
     Indication: MENTAL DISORDER
     Dosage: 1 DOSAGE FORM, QD
     Route: 048
     Dates: start: 20180522
  8. LOXAPAC                            /00401801/ [Suspect]
     Active Substance: LOXAPINE
     Indication: MENTAL DISORDER
     Dosage: 300 MILLIGRAM, QD
     Route: 048
     Dates: start: 20070920
  9. MOVICOL [Suspect]
     Active Substance: POLYETHYLENE GLYCOL 3350\POTASSIUM CHLORIDE\SODIUM BICARBONATE\SODIUM CHLORIDE
     Indication: CONSTIPATION PROPHYLAXIS
     Dosage: 4 DOSAGE FORM, QD
     Route: 048

REACTIONS (3)
  - Septic shock [Fatal]
  - Intestinal obstruction [Fatal]
  - Peritonitis [Fatal]

NARRATIVE: CASE EVENT DATE: 20190311
